FAERS Safety Report 18963594 (Version 1)
Quarter: 2021Q1

REPORT INFORMATION
  Report Type: Spontaneous
  Country: US (occurrence: US)
  Receive Date: 20210303
  Receipt Date: 20210303
  Transmission Date: 20210420
  Serious: Yes (Death, Other)
  Sender: FDA-Public Use
  Company Number: US-AMGEN-USASP2021030903

PATIENT

DRUGS (2)
  1. EPOGEN [Suspect]
     Active Substance: ERYTHROPOIETIN
     Indication: AUTOLOGOUS BONE MARROW TRANSPLANTATION THERAPY
     Dosage: 600 UNIT, 3 TIMES/WK
     Route: 042
  2. NEUPOGEN [Suspect]
     Active Substance: FILGRASTIM
     Indication: HAEMATOPOIETIC STEM CELL MOBILISATION
     Dosage: 10 MICROGRAM/KILOGRAM, QD
     Route: 065

REACTIONS (5)
  - Thrombocytopenia [Fatal]
  - Central nervous system haemorrhage [Fatal]
  - Drug ineffective [Unknown]
  - Thrombophlebitis superficial [Unknown]
  - Interstitial lung disease [Fatal]
